FAERS Safety Report 5968854-5 (Version None)
Quarter: 2008Q4

REPORT INFORMATION
  Report Type: 
  Country: None (occurrence: None)
  Receive Date: 20081119
  Receipt Date: 20081014
  Transmission Date: 20090506
  Serious: No
  Sender: FDA-Public Use
  Company Number: WAES 0810USA02472

PATIENT
  Age: 77 Year
  Sex: Male

DRUGS (2)
  1. JANUVIA [Suspect]
     Indication: TYPE 2 DIABETES MELLITUS
     Dates: start: 20080908
  2. [THERAPY UNSPECIFIED] [Concomitant]

REACTIONS (3)
  - HYPERTENSION [None]
  - HYPOGLYCAEMIA [None]
  - WRONG TECHNIQUE IN DRUG USAGE PROCESS [None]
